FAERS Safety Report 11106043 (Version 1)
Quarter: 2015Q2

REPORT INFORMATION
  Report Type: Spontaneous
  Country: JP (occurrence: JP)
  Receive Date: 20150512
  Receipt Date: 20150512
  Transmission Date: 20150821
  Serious: Yes (Hospitalization)
  Sender: FDA-Public Use
  Company Number: JP-ROCHE-1561543

PATIENT
  Age: 65 Year
  Sex: Female
  Weight: 59 kg

DRUGS (6)
  1. AVASTIN [Suspect]
     Active Substance: BEVACIZUMAB
     Dosage: TREATMENT LINE: 1
     Route: 041
     Dates: start: 20150407, end: 20150428
  2. PACLITAXEL. [Concomitant]
     Active Substance: PACLITAXEL
     Route: 041
     Dates: start: 20150114, end: 20150212
  3. AVASTIN [Suspect]
     Active Substance: BEVACIZUMAB
     Indication: OVARIAN CANCER
     Dosage: TREATMENT LINE: 1
     Route: 041
     Dates: start: 20150114
  4. PACLITAXEL. [Concomitant]
     Active Substance: PACLITAXEL
     Indication: OVARIAN CANCER
     Dosage: COMPLETED TREATMENT CYCLE NUMBER: 2
     Route: 065
     Dates: start: 20140812, end: 20141021
  5. CARBOPLATIN. [Concomitant]
     Active Substance: CARBOPLATIN
     Route: 041
     Dates: start: 20150114, end: 20150212
  6. CARBOPLATIN. [Concomitant]
     Active Substance: CARBOPLATIN
     Indication: OVARIAN CANCER
     Dosage: COMPLETED TREATMENT CYCLE NUMBER: 2C
     Route: 065
     Dates: start: 20140812, end: 20141021

REACTIONS (3)
  - Dysarthria [Recovered/Resolved]
  - Dyskinesia [Recovered/Resolved]
  - Hypoaesthesia [Recovered/Resolved]

NARRATIVE: CASE EVENT DATE: 20150401
